FAERS Safety Report 8083417-6 (Version None)
Quarter: 2012Q1

REPORT INFORMATION
  Report Type: 
  Country: None (occurrence: None)
  Receive Date: 20120127
  Receipt Date: 20110204
  Transmission Date: 20120608
  Serious: No
  Sender: FDA-Public Use
  Company Number: US-ABBOTT-11P-163-0702855-00

PATIENT
  Age: 6 Year
  Sex: Female

DRUGS (2)
  1. UVITIS [Concomitant]
     Indication: PRODUCT USED FOR UNKNOWN INDICATION
     Dosage: TO LEFT EYE
  2. HUMIRA [Suspect]
     Indication: JUVENILE ARTHRITIS
     Dates: start: 20110115

REACTIONS (2)
  - NIGHTMARE [None]
  - NASOPHARYNGITIS [None]
